FAERS Safety Report 18138256 (Version 2)
Quarter: 2021Q1

REPORT INFORMATION
  Report Type: Other
  Country: ES (occurrence: ES)
  Receive Date: 20200812
  Receipt Date: 20210208
  Transmission Date: 20210419
  Serious: Yes (Hospitalization, Disabling)
  Sender: FDA-Public Use
  Company Number: ES-CELLTRION INC.-2020ES025061

PATIENT

DRUGS (3)
  1. IBRUTINIB [Suspect]
     Active Substance: IBRUTINIB
     Indication: B-CELL LYMPHOMA
     Dosage: UNK, DAILY
     Route: 048
     Dates: start: 20191030, end: 20200622
  2. APIXABAN [Concomitant]
     Active Substance: APIXABAN
     Dosage: UNK
  3. RITUXIMAB (UNKNOWN) [Suspect]
     Active Substance: RITUXIMAB
     Indication: B-CELL LYMPHOMA
     Dosage: 400 MG/M2 EVERY 2 MONTHS
     Route: 042
     Dates: start: 20191030

REACTIONS (2)
  - Pleural effusion [Not Recovered/Not Resolved]
  - Overdose [Unknown]

NARRATIVE: CASE EVENT DATE: 20200622
